FAERS Safety Report 17891363 (Version 8)
Quarter: 2020Q3

REPORT INFORMATION
  Report Type: Spontaneous
  Country: SK (occurrence: SK)
  Receive Date: 20200612
  Receipt Date: 20200731
  Transmission Date: 20201103
  Serious: Yes (Hospitalization, Other)
  Sender: FDA-Public Use
  Company Number: NVSC2020SK161735

PATIENT
  Age: 43 Year
  Sex: Female

DRUGS (2)
  1. DASATINIB. [Suspect]
     Active Substance: DASATINIB
     Indication: CHRONIC MYELOID LEUKAEMIA
     Dosage: 100 MILLIGRAM, QD
     Route: 048
     Dates: start: 201012, end: 201103
  2. DASATINIB. [Suspect]
     Active Substance: DASATINIB
     Dosage: 140 MILLIGRAM, QD
     Route: 048
     Dates: start: 201103

REACTIONS (16)
  - Arthralgia [Recovered/Resolved]
  - Periorbital oedema [Recovered/Resolved]
  - Weight increased [Recovered/Resolved]
  - Fluid retention [Recovered/Resolved]
  - Diarrhoea [Recovered/Resolved]
  - Lacrimation increased [Unknown]
  - Muscle spasms [Recovered/Resolved]
  - Oedema peripheral [Recovered/Resolved]
  - Weight decreased [Recovered/Resolved]
  - Hypokalaemia [Recovered/Resolved]
  - Myalgia [Recovered/Resolved]
  - Face oedema [Recovered/Resolved]
  - Seizure [Recovered/Resolved]
  - Neuropathy peripheral [Recovered/Resolved]
  - Headache [Recovered/Resolved]
  - Generalised oedema [Recovered/Resolved]
